FAERS Safety Report 13442521 (Version 1)
Quarter: 2017Q2

REPORT INFORMATION
  Report Type: Spontaneous
  Country: US (occurrence: US)
  Receive Date: 20170413
  Receipt Date: 20170413
  Transmission Date: 20170830
  Serious: Yes (Other)
  Sender: FDA-Public Use
  Company Number: None

PATIENT
  Age: 70 Year
  Sex: Male
  Weight: 63.45 kg

DRUGS (1)
  1. DOXYCYCLINE. [Suspect]
     Active Substance: DOXYCYCLINE
     Indication: RESPIRATORY DISORDER
     Dosage: ?          QUANTITY:7 CAPSULE(S);?
     Route: 048

REACTIONS (3)
  - Vomiting [None]
  - Nausea [None]
  - Chest pain [None]

NARRATIVE: CASE EVENT DATE: 20170413
